FAERS Safety Report 7979235-7 (Version None)
Quarter: 2011Q4

REPORT INFORMATION
  Report Type: 
  Country: None (occurrence: None)
  Receive Date: 20111214
  Receipt Date: 20111206
  Transmission Date: 20120403
  Serious: Yes (Other)
  Sender: FDA-Public Use
  Company Number: US-JNJFOC-20111203223

PATIENT
  Sex: Female
  Weight: 74.84 kg

DRUGS (1)
  1. ELMIRON [Suspect]
     Indication: CYSTITIS INTERSTITIAL
     Route: 048

REACTIONS (5)
  - PAIN [None]
  - NAUSEA [None]
  - HERPES ZOSTER [None]
  - BURNING SENSATION [None]
  - INFLUENZA LIKE ILLNESS [None]
